FAERS Safety Report 5405858-5 (Version None)
Quarter: 2007Q3

REPORT INFORMATION
  Report Type: 
  Country: None (occurrence: None)
  Receive Date: 20070806
  Receipt Date: 20070801
  Transmission Date: 20080115
  Serious: Yes (Life-Threatening, Hospitalization)
  Sender: FDA-Public Use
  Company Number: PHFR2007GB02324

PATIENT
  Age: 73 Year
  Sex: Female
  Weight: 48 kg

DRUGS (6)
  1. CAFERGOT [Suspect]
     Indication: MIGRAINE
     Dosage: AS NECESSARY
     Route: 054
     Dates: end: 20070720
  2. ASPIRIN [Concomitant]
     Indication: TRANSIENT ISCHAEMIC ATTACK
     Dosage: 75 MG, QD
     Route: 048
  3. DOMPERIDONE [Concomitant]
     Indication: NAUSEA
     Dosage: 10 MG, PRN
     Route: 048
  4. LANSOPRAZOLE [Concomitant]
     Indication: GASTRITIS
     Dosage: 30 MG, QD
     Route: 048
  5. SERETIDE [Concomitant]
     Indication: ASTHMA
     Dosage: 2 DF, BID
  6. SUMATRIPTAN (NGX) [Suspect]
     Indication: MIGRAINE
     Dosage: 50MG
     Route: 048
     Dates: end: 20070720

REACTIONS (2)
  - ACUTE MYOCARDIAL INFARCTION [None]
  - THROMBOLYSIS [None]
